FAERS Safety Report 12577542 (Version 1)
Quarter: 2016Q3

REPORT INFORMATION
  Report Type: Report from Study
  Country: US (occurrence: US)
  Receive Date: 20160720
  Receipt Date: 20160720
  Transmission Date: 20161109
  Serious: Yes (Hospitalization)
  Sender: FDA-Public Use
  Company Number: US-IPSEN-CABO-16006627

PATIENT
  Sex: Male

DRUGS (6)
  1. ALLOPURINOL. [Concomitant]
     Active Substance: ALLOPURINOL
  2. ATENOLOL. [Concomitant]
     Active Substance: ATENOLOL
  3. LASIX [Concomitant]
     Active Substance: FUROSEMIDE
  4. CABOMETYX [Suspect]
     Active Substance: CABOZANTINIB S-MALATE
     Indication: RENAL CANCER
     Dosage: 60 MG, QD
     Route: 048
     Dates: start: 20160608, end: 201607
  5. DIOVAN [Concomitant]
     Active Substance: VALSARTAN
  6. POTASSIUM [Concomitant]
     Active Substance: POTASSIUM

REACTIONS (2)
  - Muscular weakness [Unknown]
  - Asthenia [Unknown]
